FAERS Safety Report 12465596 (Version 1)
Quarter: 2016Q2

REPORT INFORMATION
  Report Type: Report from Study
  Country: DE (occurrence: DE)
  Receive Date: 20160614
  Receipt Date: 20160614
  Transmission Date: 20160815
  Serious: Yes (Hospitalization)
  Sender: FDA-Public Use
  Company Number: PHHO2016DE008251

PATIENT
  Sex: Male
  Weight: 78 kg

DRUGS (4)
  1. PREDNISON [Concomitant]
     Active Substance: PREDNISONE
     Indication: RENAL TRANSPLANT
     Dosage: 10 MG, UNK
     Route: 065
     Dates: start: 20151022
  2. CELLCEPT [Suspect]
     Active Substance: MYCOPHENOLATE MOFETIL\MYCOPHENOLATE MOFETIL HYDROCHLORIDE
     Indication: RENAL TRANSPLANT
     Dosage: 500 MG, QD (250-0-250) BID
     Route: 065
     Dates: start: 20151021
  3. NO TREATMENT RECEIVED [Suspect]
     Active Substance: UNSPECIFIED INGREDIENT
     Indication: RENAL TRANSPLANT
     Dosage: NO TREATMENT
     Route: 065
  4. TACROLIMUS. [Suspect]
     Active Substance: TACROLIMUS
     Indication: RENAL TRANSPLANT
     Dosage: 3.5 MG, QD (2.0-0-1.5) BID
     Route: 065
     Dates: start: 20151021

REACTIONS (2)
  - Blood creatinine increased [Unknown]
  - C-reactive protein increased [Unknown]

NARRATIVE: CASE EVENT DATE: 20160503
